FAERS Safety Report 10250304 (Version 3)
Quarter: 2015Q4

REPORT INFORMATION
  Report Type: Spontaneous
  Country: JP (occurrence: JP)
  Receive Date: 20140620
  Receipt Date: 20151116
  Transmission Date: 20160304
  Serious: Yes (Hospitalization, Disabling, Other)
  Sender: FDA-Public Use
  Company Number: JP-JNJFOC-20140119064

PATIENT
  Age: 28 Year
  Sex: Male

DRUGS (11)
  1. REMICADE [Suspect]
     Active Substance: INFLIXIMAB
     Indication: CROHN^S DISEASE
     Route: 042
     Dates: start: 20140116, end: 20140116
  2. REMICADE [Suspect]
     Active Substance: INFLIXIMAB
     Indication: CROHN^S DISEASE
     Route: 042
     Dates: start: 200602
  3. LEUKERIN [Concomitant]
     Active Substance: MERCAPTOPURINE
     Route: 048
     Dates: start: 2007
  4. LEUKERIN [Concomitant]
     Active Substance: MERCAPTOPURINE
     Route: 048
     Dates: start: 2008, end: 201307
  5. REMICADE [Suspect]
     Active Substance: INFLIXIMAB
     Indication: CROHN^S DISEASE
     Route: 042
     Dates: start: 20130227, end: 20130227
  6. REMICADE [Suspect]
     Active Substance: INFLIXIMAB
     Indication: CROHN^S DISEASE
     Route: 042
     Dates: start: 200809
  7. REMICADE [Suspect]
     Active Substance: INFLIXIMAB
     Indication: CROHN^S DISEASE
     Route: 042
     Dates: start: 20121121
  8. REMICADE [Suspect]
     Active Substance: INFLIXIMAB
     Indication: CROHN^S DISEASE
     Route: 042
     Dates: start: 20121219
  9. REMICADE [Suspect]
     Active Substance: INFLIXIMAB
     Indication: CROHN^S DISEASE
     Dosage: AT WEEK 0,2, AND 6.
     Route: 042
     Dates: start: 20121108
  10. REMICADE [Suspect]
     Active Substance: INFLIXIMAB
     Indication: CROHN^S DISEASE
     Route: 042
     Dates: start: 2007
  11. PENTASA [Concomitant]
     Active Substance: MESALAMINE
     Dosage: 6 TABLETS/2N AFTER BREAKFAST AND DINNER
     Route: 048
     Dates: start: 200711

REACTIONS (5)
  - Crohn^s disease [Unknown]
  - Weight decreased [Unknown]
  - Demyelination [Recovered/Resolved with Sequelae]
  - Anal fistula [Unknown]
  - Arthralgia [Unknown]

NARRATIVE: CASE EVENT DATE: 2007
